FAERS Safety Report 18570383 (Version 1)
Quarter: 2020Q4

REPORT INFORMATION
  Report Type: Report from Study
  Country: US (occurrence: US)
  Receive Date: 20201202
  Receipt Date: 20201202
  Transmission Date: 20210114
  Serious: Yes (Hospitalization)
  Sender: FDA-Public Use
  Company Number: US-GW PHARMA-201606USGW0293

PATIENT

DRUGS (7)
  1. ONFI [Suspect]
     Active Substance: CLOBAZAM
     Dosage: 35 MILLIGRAM, QD
     Route: 048
     Dates: start: 20160531
  2. VIMPAT [Concomitant]
     Active Substance: LACOSAMIDE
     Indication: SEVERE MYOCLONIC EPILEPSY OF INFANCY
     Dosage: 200 MILLIGRAM, BID
     Route: 048
     Dates: start: 201510
  3. ONFI [Suspect]
     Active Substance: CLOBAZAM
     Indication: SEVERE MYOCLONIC EPILEPSY OF INFANCY
     Dosage: 15 MILLIGRAM, TID
     Route: 048
     Dates: start: 2014, end: 20160531
  4. ZONEGRAN [Concomitant]
     Active Substance: ZONISAMIDE
     Indication: SEVERE MYOCLONIC EPILEPSY OF INFANCY
     Dosage: 200 MILLIGRAM, BID
     Route: 048
     Dates: start: 2014
  5. EPIDIOLEX [Suspect]
     Active Substance: CANNABIDIOL
     Indication: SEVERE MYOCLONIC EPILEPSY OF INFANCY
     Dosage: 20 MG/KG, 1400 MILLIGRAM, QD
     Route: 048
     Dates: start: 20160510
  6. PHENOBARBITAL. [Concomitant]
     Active Substance: PHENOBARBITAL
     Indication: SEVERE MYOCLONIC EPILEPSY OF INFANCY
     Dosage: 60 MILLIGRAM, QD QAM
     Route: 048
     Dates: start: 201508
  7. PHENOBARBITAL. [Concomitant]
     Active Substance: PHENOBARBITAL
     Dosage: 40 MILLIGRAM, QD QHS
     Route: 048

REACTIONS (1)
  - Pneumonia aspiration [Recovered/Resolved]

NARRATIVE: CASE EVENT DATE: 20160531
